FAERS Safety Report 6836897-5 (Version None)
Quarter: 2010Q3

REPORT INFORMATION
  Report Type: 
  Country: None (occurrence: None)
  Receive Date: 20100713
  Receipt Date: 20070425
  Transmission Date: 20110219
  Serious: No
  Sender: FDA-Public Use
  Company Number: US-PFIZER INC-2007035107

PATIENT
  Sex: Female
  Weight: 68.181 kg

DRUGS (6)
  1. CHANTIX [Suspect]
     Indication: SMOKING CESSATION THERAPY
     Dates: start: 20070401
  2. IBANDRONATE SODIUM [Concomitant]
     Indication: OSTEOPOROSIS
  3. REQUIP [Concomitant]
     Indication: RESTLESS LEGS SYNDROME
  4. ADVIL LIQUI-GELS [Concomitant]
     Indication: HEADACHE
  5. ADVIL LIQUI-GELS [Concomitant]
     Indication: PAIN
  6. ADVIL LIQUI-GELS [Concomitant]

REACTIONS (1)
  - ARTHRALGIA [None]
